FAERS Safety Report 19200624 (Version 1)
Quarter: 2021Q2

REPORT INFORMATION
  Report Type: Spontaneous
  Country: US (occurrence: US)
  Receive Date: 20210430
  Receipt Date: 20210430
  Transmission Date: 20210717
  Serious: Yes (Other)
  Sender: FDA-Public Use
  Company Number: US-ASTRAZENECA-2021A359933

PATIENT
  Sex: Female
  Weight: 82.1 kg

DRUGS (1)
  1. FASENRA [Suspect]
     Active Substance: BENRALIZUMAB
     Indication: ASTHMA
     Route: 058
     Dates: start: 20200201

REACTIONS (5)
  - Angina pectoris [Unknown]
  - Stress [Unknown]
  - Emotional distress [Unknown]
  - Mental disorder [Unknown]
  - Suicidal ideation [Unknown]
